FAERS Safety Report 8378365-8 (Version None)
Quarter: 2012Q2

REPORT INFORMATION
  Report Type: 
  Country: None (occurrence: None)
  Receive Date: 20120522
  Receipt Date: 20120514
  Transmission Date: 20120825
  Serious: Yes (Hospitalization, Other)
  Sender: FDA-Public Use
  Company Number: US-ELI_LILLY_AND_COMPANY-US201205006509

PATIENT
  Sex: Female

DRUGS (11)
  1. ZOCOR [Concomitant]
     Dosage: UNK
  2. LANTUS [Concomitant]
     Dosage: UNK
  3. LEVOTHYROXINE SODIUM [Concomitant]
     Dosage: UNK
  4. LASIX [Concomitant]
     Dosage: UNK
  5. TOPROL-XL [Concomitant]
     Dosage: UNK
  6. HUMALOG [Suspect]
     Indication: TYPE 2 DIABETES MELLITUS
     Dosage: UNK UNK, PRN
     Dates: start: 20120101
  7. HUMALOG [Suspect]
     Dosage: UNK, PRN
     Dates: start: 19840101, end: 20120101
  8. IMDUR [Concomitant]
     Dosage: UNK
  9. ASPIRIN [Concomitant]
     Dosage: UNK
  10. PLAVIX [Concomitant]
     Dosage: UNK
  11. LOSARTAN POTASSIUM [Concomitant]
     Dosage: UNK

REACTIONS (10)
  - EYE OPERATION [None]
  - VISUAL IMPAIRMENT [None]
  - FOOT AMPUTATION [None]
  - GASTRIC ULCER [None]
  - NEPHROLITHIASIS [None]
  - DIABETIC COMA [None]
  - ARTERIAL DISORDER [None]
  - THROMBOSIS [None]
  - ABSCESS NECK [None]
  - CARDIAC DISORDER [None]
